FAERS Safety Report 16261688 (Version 1)
Quarter: 2019Q2

REPORT INFORMATION
  Report Type: Spontaneous
  Country: US (occurrence: US)
  Receive Date: 20190501
  Receipt Date: 20190501
  Transmission Date: 20190711
  Serious: Yes (Other)
  Sender: FDA-Public Use
  Company Number: US-ALEXION PHARMACEUTICALS INC.-A201906651

PATIENT
  Sex: Female

DRUGS (2)
  1. SOLIRIS [Suspect]
     Active Substance: ECULIZUMAB
     Indication: MYASTHENIA GRAVIS
     Dosage: 1200 MG, Q2W
     Route: 042
  2. RITUXAN [Concomitant]
     Active Substance: RITUXIMAB
     Indication: CONNECTIVE TISSUE DISORDER
     Route: 065

REACTIONS (2)
  - Myasthenia gravis [Unknown]
  - Eyelid ptosis [Unknown]
